FAERS Safety Report 4674696-3 (Version None)
Quarter: 2005Q2

REPORT INFORMATION
  Report Type: 
  Country: None (occurrence: None)
  Receive Date: 20050526
  Receipt Date: 20050523
  Transmission Date: 20051028
  Serious: Yes (Hospitalization)
  Sender: FDA-Public Use
  Company Number: US-BRISTOL-MYERS SQUIBB COMPANY-12980330

PATIENT
  Age: 49 Year
  Sex: Male
  Weight: 94 kg

DRUGS (5)
  1. CETUXIMAB [Suspect]
     Indication: NON-SMALL CELL LUNG CANCER
     Dosage: THIS COURSE TOTAL1060MG.START DATE 26-APR-05,GIVEN 400 MG/M2 WK1,THEN 250 MG/M2/WK WEEK 2-8.DELAYED.
     Route: 042
     Dates: start: 20050510, end: 20050510
  2. PARAPLATIN [Suspect]
     Indication: NON-SMALL CELL LUNG CANCER
     Dosage: GIVEN AT AUC=2 OVER 60 MINS WEEKLY, WEEK 2-8. THERAPY START DATE APR 05. THERAPY HELD.
     Route: 042
     Dates: start: 20050101, end: 20050101
  3. TAXOL [Suspect]
     Indication: NON-SMALL CELL LUNG CANCER
     Dosage: GIVEN WEEKLY WEEKS 2-8. THERAPY HELD. THERAPY START DATE APR 05.
     Route: 042
     Dates: start: 20050101, end: 20050101
  4. RADIATION THERAPY [Suspect]
     Indication: NON-SMALL CELL LUNG CANCER
     Dosage: EXTERNAL BEAM (3D). TOTAL DOSE TO DATE 19.8 GY. NUMBER OF REFRACTIONS 35.
     Dates: start: 20050517, end: 20050517
  5. COUMADIN [Concomitant]
     Indication: DEEP VEIN THROMBOSIS

REACTIONS (1)
  - DEEP VEIN THROMBOSIS [None]
